FAERS Safety Report 21212635 (Version 1)
Quarter: 2022Q3

REPORT INFORMATION
  Report Type: Spontaneous
  Country: US (occurrence: None)
  Receive Date: 20220814
  Receipt Date: 20220814
  Transmission Date: 20221027
  Serious: Yes (Disabling)
  Sender: FDA-Public Use
  Company Number: None

PATIENT
  Age: 79 Year
  Sex: Female
  Weight: 69.75 kg

DRUGS (7)
  1. TRELEGY ELLIPTA [Suspect]
     Active Substance: FLUTICASONE FUROATE\UMECLIDINIUM BROMIDE\VILANTEROL TRIFENATATE
     Indication: Asthma
     Dosage: OTHER QUANTITY : 1 PUFF(S);?FREQUENCY : DAILY;?
     Route: 055
     Dates: start: 20220429, end: 20220704
  2. IVABRADINE [Concomitant]
  3. NP THYROID [Concomitant]
     Active Substance: LEVOTHYROXINE\LIOTHYRONINE
  4. QVAR [Concomitant]
     Active Substance: BECLOMETHASONE DIPROPIONATE
  5. COMBIVENT [Concomitant]
     Active Substance: ALBUTEROL SULFATE\IPRATROPIUM BROMIDE
  6. ALBUTEROL [Concomitant]
     Active Substance: ALBUTEROL
  7. MONTELUKAST [Concomitant]
     Active Substance: MONTELUKAST SODIUM

REACTIONS (11)
  - Nasopharyngitis [None]
  - Dry mouth [None]
  - Candida infection [None]
  - Fatigue [None]
  - Muscle spasms [None]
  - Muscular weakness [None]
  - Myalgia [None]
  - Vision blurred [None]
  - Chest discomfort [None]
  - Pulmonary pain [None]
  - Therapy cessation [None]

NARRATIVE: CASE EVENT DATE: 20220704
